FAERS Safety Report 6288738-5 (Version None)
Quarter: 2009Q3

REPORT INFORMATION
  Report Type: 
  Country: None (occurrence: None)
  Receive Date: 20090729
  Receipt Date: 20090723
  Transmission Date: 20100115
  Serious: Yes (Hospitalization)
  Sender: FDA-Public Use
  Company Number: ES-WYE-G04106209

PATIENT
  Age: 66 Year
  Sex: Male

DRUGS (6)
  1. RAPAMUNE [Suspect]
     Indication: PROPHYLAXIS AGAINST TRANSPLANT REJECTION
     Route: 048
     Dates: start: 20090101
  2. CELLCEPT [Concomitant]
     Indication: PROPHYLAXIS AGAINST TRANSPLANT REJECTION
     Route: 048
     Dates: start: 20070901
  3. PREDNISONE [Suspect]
     Indication: PROPHYLAXIS AGAINST TRANSPLANT REJECTION
     Route: 048
     Dates: start: 20070901
  4. PREDNISONE [Suspect]
     Dosage: UNKNOWN DOSE ADMINISTERED BY BOLUS
     Route: 042
     Dates: start: 20090511, end: 20090513
  5. SINTROM [Suspect]
     Indication: ATRIAL FIBRILLATION
     Dosage: UNKNOWN
     Route: 048
     Dates: start: 20070101, end: 20090517
  6. IMIPENEM [Suspect]
     Indication: URINARY TRACT INFECTION
     Route: 042
     Dates: start: 20090511, end: 20090528

REACTIONS (3)
  - DRUG INTERACTION [None]
  - HYPOCOAGULABLE STATE [None]
  - RENAL HAEMATOMA [None]
